FAERS Safety Report 15745600 (Version 2)
Quarter: 2019Q3

REPORT INFORMATION
  Report Type: Spontaneous
  Country: US (occurrence: US)
  Receive Date: 20181220
  Receipt Date: 20190702
  Transmission Date: 20191004
  Serious: Yes (Other)
  Sender: FDA-Public Use
  Company Number: US-MYLANLABS-2018M1091669

PATIENT
  Sex: Male
  Weight: 76 kg

DRUGS (1)
  1. AMLODIPINE BESYLATE AND VALSARTAN [Suspect]
     Active Substance: AMLODIPINE BESYLATE\VALSARTAN
     Indication: HYPERTENSION
     Dosage: UNK
     Route: 048
     Dates: end: 20181206

REACTIONS (4)
  - Blood pressure increased [Unknown]
  - Expired product administered [Unknown]
  - Chest pain [Recovered/Resolved]
  - Wrong technique in product usage process [Unknown]
